FAERS Safety Report 7609545-4 (Version None)
Quarter: 2011Q3

REPORT INFORMATION
  Report Type: 
  Country: None (occurrence: None)
  Receive Date: 20110714
  Receipt Date: 20110707
  Transmission Date: 20111222
  Serious: Yes (Hospitalization, Other)
  Sender: FDA-Public Use
  Company Number: FR-BAYER-2011-059729

PATIENT
  Age: -1 Year

DRUGS (1)
  1. NEXAVAR [Suspect]
     Indication: HEPATIC NEOPLASM MALIGNANT
     Dosage: 820 MG, QD

REACTIONS (4)
  - OEDEMA PERIPHERAL [None]
  - DYSPNOEA EXERTIONAL [None]
  - PULMONARY EMBOLISM [None]
  - GASTROINTESTINAL HAEMORRHAGE [None]
